FAERS Safety Report 15350340 (Version 1)
Quarter: 2018Q4

REPORT INFORMATION
  Report Type: Spontaneous
  Country: US (occurrence: US)
  Receive Date: 20180905
  Receipt Date: 20180905
  Transmission Date: 20190204
  Serious: Yes (Hospitalization, Other)
  Sender: FDA-Public Use
  Company Number: US-ALVOGEN-2018-ALVOGEN-097205

PATIENT
  Sex: Male
  Weight: 118.39 kg

DRUGS (10)
  1. APIXABAN [Concomitant]
     Active Substance: APIXABAN
     Indication: HYPERTENSION
     Dates: start: 2010
  2. ASCORBIC ACID/CALCIUM PANTOTHENATE/ERGOCALCIFEROL/NICOTINAMIDE/PYRIDOXINE HYDROCHLORIDE/RETINOL/RIBO [Concomitant]
     Indication: PRODUCT USED FOR UNKNOWN INDICATION
  3. TIOTROPIUM BROMIDE [Concomitant]
     Active Substance: TIOTROPIUM BROMIDE
     Indication: CHRONIC OBSTRUCTIVE PULMONARY DISEASE
     Route: 055
     Dates: start: 2010
  4. DRONEDARONE HYDROCHLORIDE [Concomitant]
     Active Substance: DRONEDARONE HYDROCHLORIDE
     Indication: HEART RATE
     Dates: start: 2010
  5. BUDESONIDE/FORMOTEROL FUMARATE [Suspect]
     Active Substance: BUDESONIDE\FORMOTEROL FUMARATE
     Indication: CHRONIC OBSTRUCTIVE PULMONARY DISEASE
     Dosage: 160-4.5MCG, 2 PUFFS BID
     Route: 055
  6. ATORVASTATIN [Concomitant]
     Active Substance: ATORVASTATIN
     Indication: HEART RATE
     Dates: start: 2010
  7. POTASSIUM BICARBONATE/POTASSIUM BITARTRATE [Concomitant]
     Indication: PRODUCT USED FOR UNKNOWN INDICATION
     Route: 048
  8. HYDROCHLOROTHIAZIDE. [Concomitant]
     Active Substance: HYDROCHLOROTHIAZIDE
     Indication: HEART RATE
  9. COLECALCIFEROL [Concomitant]
     Active Substance: CHOLECALCIFEROL
     Indication: PRODUCT USED FOR UNKNOWN INDICATION
  10. LISINOPRIL. [Suspect]
     Active Substance: LISINOPRIL
     Indication: HYPERTENSION
     Route: 048
     Dates: start: 2010

REACTIONS (4)
  - Atrial fibrillation [Unknown]
  - Visual impairment [Unknown]
  - Amnesia [Unknown]
  - Cardiac disorder [Not Recovered/Not Resolved]
